FAERS Safety Report 15998637 (Version 2)
Quarter: 2019Q1

REPORT INFORMATION
  Report Type: Spontaneous
  Country: FR (occurrence: FR)
  Receive Date: 20190223
  Receipt Date: 20190307
  Transmission Date: 20190418
  Serious: Yes (Hospitalization)
  Sender: FDA-Public Use
  Company Number: FR-ACCORD-108818

PATIENT
  Age: 67 Year
  Sex: Male
  Weight: 56.6 kg

DRUGS (6)
  1. AMLODIPINE [Suspect]
     Active Substance: AMLODIPINE BESYLATE
     Indication: ISCHAEMIC STROKE
     Route: 048
     Dates: start: 20180525, end: 20180718
  2. EZETIMIBE. [Concomitant]
     Active Substance: EZETIMIBE
  3. KARDEGIC [Concomitant]
     Active Substance: ASPIRIN DL-LYSINE
     Dosage: STRENGTH : 160 MG
  4. IZALGI [Concomitant]
     Active Substance: ACETAMINOPHEN\OPIUM
     Dosage: STRENGTH : 500 MG / 25 MG
  5. PERINDOPRIL/PERINDOPRIL ERBUMINE [Suspect]
     Active Substance: PERINDOPRIL ERBUMINE
     Indication: ISCHAEMIC STROKE
     Route: 048
     Dates: start: 20180525, end: 20180718
  6. LANSOYL [Concomitant]
     Active Substance: MINERAL OIL

REACTIONS (2)
  - Malaise [Recovered/Resolved]
  - Polyuria [Unknown]

NARRATIVE: CASE EVENT DATE: 201807
